FAERS Safety Report 19269949 (Version 1)
Quarter: 2021Q2

REPORT INFORMATION
  Report Type: Spontaneous
  Country: US (occurrence: US)
  Receive Date: 20210518
  Receipt Date: 20210518
  Transmission Date: 20210717
  Serious: No
  Sender: FDA-Public Use
  Company Number: US-CELLTRION INC.-2021US005176

PATIENT

DRUGS (5)
  1. TRUXIMA [Suspect]
     Active Substance: RITUXIMAB-ABBS
     Dosage: 1000 MG EVERY 4 MONTHS
     Route: 042
     Dates: start: 20201222
  2. TRUXIMA [Suspect]
     Active Substance: RITUXIMAB-ABBS
     Indication: NEPHROTIC SYNDROME
     Dosage: 1000 MG EVERY 4 MONTHS
     Route: 042
     Dates: start: 20200722
  3. TRUXIMA [Suspect]
     Active Substance: RITUXIMAB-ABBS
     Dosage: 1000 MG (FREQUENCY EVERY 4 MONTHS)
     Route: 042
     Dates: start: 20210414
  4. LASIX [Concomitant]
     Active Substance: FUROSEMIDE
  5. VITAMIN D [Concomitant]
     Active Substance: VITAMIN D NOS

REACTIONS (1)
  - Off label use [Unknown]

NARRATIVE: CASE EVENT DATE: 20200722
